FAERS Safety Report 7772173-4 (Version None)
Quarter: 2011Q3

REPORT INFORMATION
  Report Type: 
  Country: None (occurrence: None)
  Receive Date: 20110922
  Receipt Date: 20101026
  Transmission Date: 20111222
  Serious: No
  Sender: FDA-Public Use
  Company Number: US-ASTRAZENECA-2008UW23538

PATIENT
  Sex: Male

DRUGS (3)
  1. ZOLOFT [Concomitant]
  2. SEROQUEL [Suspect]
     Route: 048
     Dates: start: 20070514
  3. SEROQUEL [Suspect]
     Route: 048

REACTIONS (6)
  - DRUG DOSE OMISSION [None]
  - WEIGHT INCREASED [None]
  - GLUCOSE TOLERANCE IMPAIRED [None]
  - THROAT TIGHTNESS [None]
  - DYSPHAGIA [None]
  - BLOOD CHOLESTEROL INCREASED [None]
